FAERS Safety Report 11618421 (Version 3)
Quarter: 2015Q4

REPORT INFORMATION
  Report Type: Spontaneous
  Country: GB (occurrence: GB)
  Receive Date: 20151012
  Receipt Date: 20151210
  Transmission Date: 20160304
  Serious: Yes (Hospitalization, Other)
  Sender: FDA-Public Use
  Company Number: GB-AMGEN-GBRSP2015096332

PATIENT
  Age: 78 Year
  Sex: Female
  Weight: 73 kg

DRUGS (1)
  1. ENBREL [Suspect]
     Active Substance: ETANERCEPT
     Indication: RHEUMATOID ARTHRITIS
     Dosage: 50 MG, WEEKLY
     Route: 065
     Dates: start: 20150721, end: 20150907

REACTIONS (19)
  - Condition aggravated [Unknown]
  - Feeling hot [Unknown]
  - Rubber sensitivity [Unknown]
  - Hyperventilation [Recovered/Resolved]
  - Injection site reaction [Unknown]
  - Productive cough [Unknown]
  - Muscle spasms [Unknown]
  - Neovascular age-related macular degeneration [Unknown]
  - Alopecia [Recovered/Resolved]
  - Drug ineffective [Unknown]
  - Erythema [Unknown]
  - Malaise [Unknown]
  - Fatigue [Unknown]
  - Urticaria [Recovering/Resolving]
  - Injection site pain [Unknown]
  - Injection site erythema [Unknown]
  - Nausea [Unknown]
  - Rash [Recovering/Resolving]
  - Pain [Unknown]

NARRATIVE: CASE EVENT DATE: 2015
